FAERS Safety Report 16957535 (Version 1)
Quarter: 2019Q4

REPORT INFORMATION
  Report Type: Spontaneous
  Country: AU (occurrence: AU)
  Receive Date: 20191024
  Receipt Date: 20191024
  Transmission Date: 20200122
  Serious: Yes (Other)
  Sender: FDA-Public Use
  Company Number: AU-JNJFOC-20191030421

PATIENT
  Sex: Female

DRUGS (1)
  1. RIVAROXABAN [Suspect]
     Active Substance: RIVAROXABAN
     Indication: HIP ARTHROPLASTY
     Dosage: 15 MG, QD
     Route: 048

REACTIONS (3)
  - Transient ischaemic attack [Unknown]
  - Coronary artery thrombosis [Unknown]
  - Off label use [Unknown]
